FAERS Safety Report 8722722 (Version 5)
Quarter: 2012Q4

REPORT INFORMATION
  Report Type: 
  Country: US (occurrence: US)
  Receive Date: 20120814
  Receipt Date: 20121220
  Transmission Date: 20130627
  Serious: Yes (Hospitalization)
  Sender: FDA-Public Use
  Company Number: US-GILEAD-2012-0059380

PATIENT
  Age: 53 Year
  Sex: Male

DRUGS (2)
  1. LETAIRIS [Suspect]
     Indication: PULMONARY HYPERTENSION
     Dosage: 10 mg, UNK
     Route: 048
     Dates: start: 20120217
  2. LETAIRIS [Suspect]
     Indication: HEPATOPULMONARY SYNDROME

REACTIONS (7)
  - Liver transplant [Unknown]
  - Renal failure chronic [Unknown]
  - Hepatic failure [Unknown]
  - Liver function test abnormal [Unknown]
  - Jaundice [Unknown]
  - Renal disorder [Unknown]
  - Nausea [Unknown]
